FAERS Safety Report 4550723-9 (Version None)
Quarter: 2004Q4

REPORT INFORMATION
  Report Type: 
  Country: None (occurrence: None)
  Receive Date: 20041217
  Receipt Date: 20040927
  Transmission Date: 20050328
  Serious: No
  Sender: FDA-Public Use
  Company Number: 2004-BP-08220BP

PATIENT
  Age: 72 Year
  Sex: Male

DRUGS (8)
  1. SPIRIVA [Suspect]
     Indication: CARDIAC FAILURE CONGESTIVE
     Dosage: 18 MCG (18 MCG) IH
     Route: 055
     Dates: start: 20040917
  2. GLYBURIDE [Concomitant]
  3. DIGOXIN [Concomitant]
  4. COREG [Concomitant]
  5. AVAPRO [Concomitant]
  6. LASIX [Concomitant]
  7. ZUVOXLYN [Concomitant]
  8. SPIRONOLONE (SPIRONOLACTONE) [Concomitant]

REACTIONS (1)
  - BLOOD GLUCOSE INCREASED [None]
